APPROVED DRUG PRODUCT: NEORAL
Active Ingredient: CYCLOSPORINE
Strength: 25MG
Dosage Form/Route: CAPSULE;ORAL
Application: N050715 | Product #001 | TE Code: AB1
Applicant: NOVARTIS PHARMACEUTICALS CORP
Approved: Jul 14, 1995 | RLD: Yes | RS: No | Type: RX